FAERS Safety Report 4693307-4 (Version None)
Quarter: 2005Q2

REPORT INFORMATION
  Report Type: 
  Country: None (occurrence: None)
  Receive Date: 20050617
  Receipt Date: 20040813
  Transmission Date: 20051028
  Serious: Yes (Disabling, Other)
  Sender: FDA-Public Use
  Company Number: US-MERCK-0408USA01209

PATIENT
  Age: 81 Year
  Sex: Male

DRUGS (6)
  1. ZOCOR [Suspect]
     Indication: BLOOD CHOLESTEROL INCREASED
     Route: 048
     Dates: start: 19960101, end: 20040415
  2. ZOCOR [Suspect]
     Route: 048
  3. VERAPAMIL [Concomitant]
     Route: 065
     Dates: start: 19960101, end: 20030101
  4. PERCOCET [Concomitant]
     Route: 065
  5. VICODIN [Concomitant]
     Route: 065
  6. [THERAPY UNSPECIFIED] [Suspect]
     Route: 065

REACTIONS (8)
  - ASTHENIA [None]
  - CONVULSION [None]
  - DIZZINESS [None]
  - FEELING ABNORMAL [None]
  - INTERVERTEBRAL DISC COMPRESSION [None]
  - MUSCLE SPASMS [None]
  - PARAESTHESIA [None]
  - PARALYSIS [None]
